FAERS Safety Report 23143769 (Version 1)
Quarter: 2023Q4

REPORT INFORMATION
  Report Type: Spontaneous
  Country: US (occurrence: None)
  Receive Date: 20231103
  Receipt Date: 20231103
  Transmission Date: 20240109
  Serious: Yes (unspecified)
  Sender: FDA-Public Use
  Company Number: None

PATIENT
  Age: 70 Year
  Sex: Male
  Weight: 75.15 kg

DRUGS (3)
  1. REVLIMID [Suspect]
     Active Substance: LENALIDOMIDE
     Indication: Plasma cell myeloma
     Dosage: OTHER FREQUENCY : 1 PO DAYS 1-21;?
     Route: 048
     Dates: start: 20230913, end: 20231018
  2. DARZALEX [Concomitant]
     Active Substance: DARATUMUMAB
     Dates: start: 20230911
  3. DECADRON [Concomitant]
     Active Substance: DEXAMETHASONE
     Dates: start: 20230911

REACTIONS (2)
  - Neutropenia [None]
  - Therapy interrupted [None]

NARRATIVE: CASE EVENT DATE: 20231023
